FAERS Safety Report 5330140-4 (Version None)
Quarter: 2007Q2

REPORT INFORMATION
  Report Type: 
  Country: None (occurrence: None)
  Receive Date: 20070521
  Receipt Date: 20070517
  Transmission Date: 20071010
  Serious: Yes (Death, Life-Threatening)
  Sender: FDA-Public Use
  Company Number: US-ASTRAZENECA-2007UW12261

PATIENT
  Age: 37 Year
  Sex: Male

DRUGS (5)
  1. SEROQUEL [Suspect]
     Route: 048
     Dates: start: 20060519
  2. SEROQUEL [Suspect]
     Route: 048
  3. RITALIN [Concomitant]
  4. LAMICTAL [Concomitant]
  5. WELLBUTRIN XL [Concomitant]

REACTIONS (1)
  - OVERDOSE [None]
